FAERS Safety Report 15036656 (Version 1)
Quarter: 2018Q2

REPORT INFORMATION
  Report Type: Spontaneous
  Country: MX (occurrence: MX)
  Receive Date: 20180620
  Receipt Date: 20180620
  Transmission Date: 20180711
  Serious: Yes (Death, Other)
  Sender: FDA-Public Use
  Company Number: MX-BAYER-2017-218074

PATIENT
  Age: 65 Year
  Sex: Male

DRUGS (1)
  1. NEXAVAR [Suspect]
     Active Substance: SORAFENIB
     Indication: HEPATOCELLULAR CARCINOMA
     Dosage: UNK
     Dates: start: 20160318, end: 20171025

REACTIONS (5)
  - Hepatocellular carcinoma [Fatal]
  - Mobility decreased [None]
  - Abdominal distension [None]
  - Abdominal rigidity [None]
  - Asthenia [None]

NARRATIVE: CASE EVENT DATE: 20171002
